FAERS Safety Report 14693319 (Version 1)
Quarter: 2018Q1

REPORT INFORMATION
  Report Type: Spontaneous
  Country: FR (occurrence: FR)
  Receive Date: 20180329
  Receipt Date: 20180329
  Transmission Date: 20180509
  Serious: Yes (Other)
  Sender: FDA-Public Use
  Company Number: FR-ROCHE-2096022

PATIENT

DRUGS (1)
  1. LUCENTIS [Suspect]
     Active Substance: RANIBIZUMAB
     Indication: DIABETIC RETINAL OEDEMA
     Dosage: 0.5 MG (IN THE MORNING AND IN THE AFTERNOON ON SAME DAY)
     Route: 065

REACTIONS (2)
  - Infarction [Unknown]
  - Inappropriate schedule of drug administration [Unknown]
